FAERS Safety Report 12518519 (Version 1)
Quarter: 2016Q2

REPORT INFORMATION
  Report Type: Spontaneous
  Country: US (occurrence: CA)
  Receive Date: 20160630
  Receipt Date: 20160630
  Transmission Date: 20160815
  Serious: Yes (Other)
  Sender: FDA-Public Use
  Company Number: US-PFIZER INC-2016316092

PATIENT
  Sex: Female

DRUGS (1)
  1. ADVIL [Suspect]
     Active Substance: IBUPROFEN
     Dosage: UNK

REACTIONS (8)
  - Hyperaesthesia [Recovering/Resolving]
  - Asthenia [Recovering/Resolving]
  - Poor quality sleep [Recovering/Resolving]
  - Dyspnoea [Recovering/Resolving]
  - Product use issue [Unknown]
  - Chest pain [Not Recovered/Not Resolved]
  - Feeling abnormal [Recovering/Resolving]
  - Malaise [Recovering/Resolving]
